FAERS Safety Report 4478677-4 (Version None)
Quarter: 2004Q4

REPORT INFORMATION
  Report Type: 
  Country: None (occurrence: None)
  Receive Date: 20040923
  Receipt Date: 20040603
  Transmission Date: 20050328
  Serious: No
  Sender: FDA-Public Use
  Company Number: USA040669165

PATIENT
  Age: 75 Year
  Sex: Female
  Weight: 573 kg

DRUGS (2)
  1. FORTEO [Suspect]
  2. SODIUM CHLORIDE [Suspect]

REACTIONS (1)
  - MEDICATION ERROR [None]
